FAERS Safety Report 24393193 (Version 1)
Quarter: 2024Q4

REPORT INFORMATION
  Report Type: Spontaneous
  Country: US (occurrence: US)
  Receive Date: 20241003
  Receipt Date: 20241003
  Transmission Date: 20250115
  Serious: Yes (Death, Hospitalization)
  Sender: STRIDES
  Company Number: US-STRIDES ARCOLAB LIMITED-2024SP012597

PATIENT
  Age: 75 Year
  Sex: Male

DRUGS (2)
  1. ETOPOSIDE [Suspect]
     Active Substance: ETOPOSIDE
     Indication: Neuroendocrine carcinoma
     Dosage: UNK, CYCLICAL, RECEIVED 2 CYCLES
     Route: 065
  2. CARBOPLATIN [Suspect]
     Active Substance: CARBOPLATIN
     Indication: Neuroendocrine carcinoma
     Dosage: UNK, CYCLICAL, RECEIVED 2 CYCLES
     Route: 065

REACTIONS (6)
  - Drug ineffective [Fatal]
  - Neutropenia [Unknown]
  - Thrombocytopenia [Unknown]
  - Septic shock [Unknown]
  - Bacteraemia [Unknown]
  - Pneumocystis jirovecii pneumonia [Unknown]
